FAERS Safety Report 12325254 (Version 1)
Quarter: 2016Q2

REPORT INFORMATION
  Report Type: Spontaneous
  Country: US (occurrence: US)
  Receive Date: 20160502
  Receipt Date: 20160502
  Transmission Date: 20160815
  Serious: No
  Sender: FDA-Public Use
  Company Number: US-MAYNE PHARMA-2016MYN000098

PATIENT
  Age: 73 Year
  Sex: Male
  Weight: 68.27 kg

DRUGS (1)
  1. OXYCODONE AND ASPIRIN [Suspect]
     Active Substance: ASPIRIN\OXYCODONE HYDROCHLORIDE
     Indication: NEURALGIA
     Dosage: 1-2 TABLETS PRN
     Route: 048
     Dates: start: 201511, end: 201602

REACTIONS (1)
  - Dyspepsia [Recovered/Resolved]

NARRATIVE: CASE EVENT DATE: 201511
